FAERS Safety Report 8490619-3 (Version None)
Quarter: 2012Q3

REPORT INFORMATION
  Report Type: 
  Country: None (occurrence: None)
  Receive Date: 20120705
  Receipt Date: 20120627
  Transmission Date: 20120928
  Serious: Yes (Hospitalization)
  Sender: FDA-Public Use
  Company Number: FR-ABBOTT-12P-056-0950495-00

PATIENT
  Sex: Female

DRUGS (1)
  1. VERCYTE [Suspect]
     Indication: POLYCYTHAEMIA VERA
     Dosage: 2CAPS ON EVEN DAYS, 3CAPS ON UNEVEN DAYS
     Route: 048
     Dates: start: 20110615, end: 20110915

REACTIONS (5)
  - THROMBOCYTOPENIA [None]
  - ERYTHROPENIA [None]
  - PHLEBITIS SUPERFICIAL [None]
  - THROMBOSIS [None]
  - TOXICITY TO VARIOUS AGENTS [None]
